FAERS Safety Report 18596013 (Version 1)
Quarter: 2020Q4

REPORT INFORMATION
  Report Type: Spontaneous
  Country: US (occurrence: US)
  Receive Date: 20201209
  Receipt Date: 20201209
  Transmission Date: 20210114
  Serious: No
  Sender: FDA-Public Use
  Company Number: None

PATIENT
  Age: 80 Year
  Sex: Male
  Weight: 86.85 kg

DRUGS (9)
  1. ATORVASTATIN 10 MG, ORAL [Concomitant]
  2. DOXAZOSIN 1 MG, ORAL [Concomitant]
  3. CORGARD 20 MG, ORAL [Concomitant]
  4. PRILOSEC 20 MG, ORAL [Concomitant]
  5. ERLEADA [Suspect]
     Active Substance: APALUTAMIDE
     Indication: PROSTATE CANCER
     Route: 048
     Dates: start: 20201114
  6. MECLIZINE 12.5 MG, ORAL [Concomitant]
  7. NITROGLYCERINE ER 6.5 MG, ORAL [Concomitant]
  8. PLAVIX 75 MG, ORAL [Concomitant]
  9. LUPRON DEPOT 45 MG, INJECTION [Concomitant]

REACTIONS (2)
  - Blood pressure increased [None]
  - Pollakiuria [None]

NARRATIVE: CASE EVENT DATE: 20201209
